FAERS Safety Report 22367718 (Version 1)
Quarter: 2023Q2

REPORT INFORMATION
  Report Type: Spontaneous
  Country: None (occurrence: US)
  Receive Date: 20230525
  Receipt Date: 20230525
  Transmission Date: 20230722
  Serious: No
  Sender: FDA-Public Use
  Company Number: US-Breckenridge Pharmaceutical, Inc.-2142002

PATIENT
  Age: 54 Year
  Sex: Female
  Weight: 52.273 kg

DRUGS (1)
  1. ALPRAZOLAM [Suspect]
     Active Substance: ALPRAZOLAM
     Indication: Insomnia
     Route: 048

REACTIONS (9)
  - Unevaluable event [Recovered/Resolved]
  - Foaming at mouth [Unknown]
  - Gastrooesophageal reflux disease [Recovered/Resolved]
  - Gastrointestinal sounds abnormal [Recovered/Resolved]
  - Discomfort [Recovered/Resolved]
  - Insomnia [Recovered/Resolved]
  - Visual impairment [Unknown]
  - Disorientation [Unknown]
  - Dizziness [Recovered/Resolved]
